FAERS Safety Report 20084676 (Version 1)
Quarter: 2021Q4

REPORT INFORMATION
  Report Type: Report from Study
  Country: US (occurrence: US)
  Receive Date: 20211118
  Receipt Date: 20211118
  Transmission Date: 20220303
  Serious: Yes (Other)
  Sender: FDA-Public Use
  Company Number: US-ALNYLAM PHARMACEUTICALS, INC.-ALN-2021-002959

PATIENT

DRUGS (7)
  1. GIVLAARI [Suspect]
     Active Substance: GIVOSIRAN SODIUM
     Indication: Porphyria acute
     Dosage: 0.82 MILLILITER (189 MG/ML), MONTHLY
     Route: 058
  2. GIVLAARI [Suspect]
     Active Substance: GIVOSIRAN SODIUM
     Indication: Epilepsy
  3. GIVLAARI [Suspect]
     Active Substance: GIVOSIRAN SODIUM
     Indication: Mineral metabolism disorder
  4. GIVLAARI [Suspect]
     Active Substance: GIVOSIRAN SODIUM
     Indication: Sucrase-isomaltase deficiency
  5. EPINEPHRINE [Concomitant]
     Active Substance: EPINEPHRINE
     Indication: Product used for unknown indication
     Dosage: UNK
     Route: 065
  6. ONFI [Concomitant]
     Active Substance: CLOBAZAM
     Indication: Product used for unknown indication
     Dosage: 10 MILLIGRAM
     Route: 065
  7. VIMPAT [Concomitant]
     Active Substance: LACOSAMIDE
     Indication: Product used for unknown indication
     Dosage: 100 MILLIGRAM
     Route: 065

REACTIONS (3)
  - Seizure [Unknown]
  - Injection site pain [Unknown]
  - Memory impairment [Unknown]
